FAERS Safety Report 15223626 (Version 1)
Quarter: 2018Q3

REPORT INFORMATION
  Report Type: Report from Study
  Country: US (occurrence: US)
  Receive Date: 20180731
  Receipt Date: 20180731
  Transmission Date: 20181010
  Serious: No
  Sender: FDA-Public Use
  Company Number: US-AMGEN-USASL2018079904

PATIENT
  Age: 93 Year
  Sex: Female
  Weight: 63.5 kg

DRUGS (2)
  1. IMLYGIC [Suspect]
     Active Substance: TALIMOGENE LAHERPAREPVEC
     Dosage: 4 ML, Q2WK (10^8)
     Route: 058
     Dates: start: 20180420
  2. IMLYGIC [Suspect]
     Active Substance: TALIMOGENE LAHERPAREPVEC
     Indication: MALIGNANT MELANOMA
     Dosage: 3 ML, UNK (10^6)
     Route: 058
     Dates: start: 20180330

REACTIONS (5)
  - Injection site pain [Unknown]
  - Fatigue [Unknown]
  - Lethargy [Unknown]
  - Application site discomfort [Unknown]
  - Hypersomnia [Unknown]

NARRATIVE: CASE EVENT DATE: 2018
